FAERS Safety Report 14242220 (Version 1)
Quarter: 2017Q4

REPORT INFORMATION
  Report Type: Spontaneous
  Country: US (occurrence: US)
  Receive Date: 20171130
  Receipt Date: 20171130
  Transmission Date: 20180321
  Serious: No
  Sender: FDA-Public Use
  Company Number: None

PATIENT
  Sex: Male
  Weight: 72 kg

DRUGS (3)
  1. LEVOTHYROXINE NA [Concomitant]
     Active Substance: LEVOTHYROXINE SODIUM
  2. BABY ASPIRIN [Concomitant]
     Active Substance: ASPIRIN
  3. ROSUVASTATIN CA 40MG TAB (CUT IN HALF - 20MG PER DAY) [Suspect]
     Active Substance: ROSUVASTATIN CALCIUM
     Indication: BLOOD CHOLESTEROL INCREASED
     Dosage: ?          QUANTITY:45 TABLET(S);?
     Route: 048
     Dates: start: 20170401, end: 20171125

REACTIONS (7)
  - Throat irritation [None]
  - Inability to afford medication [None]
  - Pruritus [None]
  - Disorientation [None]
  - Dyspnoea [None]
  - Lung disorder [None]
  - Withdrawal syndrome [None]

NARRATIVE: CASE EVENT DATE: 20171125
